FAERS Safety Report 7156902-9 (Version None)
Quarter: 2010Q4

REPORT INFORMATION
  Report Type: 
  Country: None (occurrence: None)
  Receive Date: 20101214
  Receipt Date: 20101207
  Transmission Date: 20110411
  Serious: Yes (Hospitalization)
  Sender: FDA-Public Use
  Company Number: FR-ASTRAZENECA-2010SE58243

PATIENT
  Age: 33 Year
  Sex: Female

DRUGS (5)
  1. DIPRIVAN [Suspect]
     Indication: ANAESTHESIA
     Route: 042
     Dates: start: 20101007, end: 20101007
  2. ESMERON [Suspect]
     Indication: ANAESTHESIA
     Route: 042
     Dates: start: 20101007, end: 20101007
  3. SUFENTA PRESERVATIVE FREE [Suspect]
     Indication: ANAESTHESIA
     Route: 042
     Dates: start: 20101007, end: 20101007
  4. SEVORANE [Suspect]
     Indication: ANAESTHESIA
     Route: 048
     Dates: start: 20101007, end: 20101007
  5. ATARAX [Concomitant]
     Route: 048
     Dates: start: 20101006, end: 20101007

REACTIONS (1)
  - ANAPHYLACTIC SHOCK [None]
